FAERS Safety Report 23013963 (Version 1)
Quarter: 2023Q4

REPORT INFORMATION
  Report Type: Spontaneous
  Country: US (occurrence: US)
  Receive Date: 20231001
  Receipt Date: 20231001
  Transmission Date: 20240110
  Serious: No
  Sender: FDA-Public Use
  Company Number: US-drreddys-SPO/USA/23/0173621

PATIENT

DRUGS (6)
  1. ERYC [Suspect]
     Active Substance: ERYTHROMYCIN
     Indication: Product used for unknown indication
  2. FLAGYL [Concomitant]
     Active Substance: METRONIDAZOLE\METRONIDAZOLE HYDROCHLORIDE
     Indication: Product used for unknown indication
  3. ALPHA LIPOIC ACID [Concomitant]
     Active Substance: .ALPHA.-LIPOIC ACID
     Indication: Product used for unknown indication
  4. PEANUT CONTAINING DRUG PRODUCT [Concomitant]
     Indication: Product used for unknown indication
  5. CODEINE [Concomitant]
     Active Substance: CODEINE
     Indication: Product used for unknown indication
  6. IBRANCE [Concomitant]
     Active Substance: PALBOCICLIB
     Indication: Product used for unknown indication
     Dosage: FOR 21 DAYS
     Route: 048

REACTIONS (1)
  - Abdominal discomfort [Unknown]
